FAERS Safety Report 4413091-9 (Version None)
Quarter: 2004Q3

REPORT INFORMATION
  Report Type: 
  Country: None (occurrence: None)
  Receive Date: 20040802
  Receipt Date: 20040722
  Transmission Date: 20050211
  Serious: Yes (Hospitalization)
  Sender: FDA-Public Use
  Company Number: IT-ROCHE-375399

PATIENT
  Age: 65 Year
  Sex: Male

DRUGS (3)
  1. INTERFERON ALFA-2A [Suspect]
     Indication: METASTATIC MALIGNANT MELANOMA
     Dosage: ON DAYS 11 AND 18 OF A TWENTY-EIGHT DAY CYCLE
     Route: 058
     Dates: start: 20040402
  2. THYMOSIN ALPHA 1 [Suspect]
     Indication: METASTATIC MALIGNANT MELANOMA
     Dosage: ON DAYS 8-11 AND 15-18 IN A TWENTY-EIGHT DAY CYCLE
     Route: 058
     Dates: start: 20040402
  3. DACARBAZINE [Suspect]
     Indication: METASTATIC MALIGNANT MELANOMA
     Dosage: ON DAY ONE OF A TWENTY-EIGHT DAY CYCLE
     Route: 058
     Dates: start: 20040402

REACTIONS (1)
  - APLASIA [None]
